FAERS Safety Report 19357815 (Version 1)
Quarter: 2021Q2

REPORT INFORMATION
  Report Type: Spontaneous
  Country: US (occurrence: US)
  Receive Date: 20210601
  Receipt Date: 20210601
  Transmission Date: 20210717
  Serious: Yes (Other)
  Sender: FDA-Public Use
  Company Number: US-BRISTOL-MYERS SQUIBB COMPANY-BMS-2021-049079

PATIENT
  Age: 33 Year
  Sex: Male
  Weight: 78.91 kg

DRUGS (3)
  1. KENALOG?10 [Suspect]
     Active Substance: TRIAMCINOLONE ACETONIDE
     Indication: CARPAL TUNNEL SYNDROME
     Dosage: TWO 10 MG,ONE INJECTION PER WRIST 1CC
     Route: 050
     Dates: start: 20210513, end: 202105
  2. MULTIVITAMINS [VITAMINS NOS] [Concomitant]
     Active Substance: VITAMINS
     Indication: PRODUCT USED FOR UNKNOWN INDICATION
     Dosage: UNK
     Route: 065
  3. LIDOCAINE. [Concomitant]
     Active Substance: LIDOCAINE
     Indication: PRODUCT USED FOR UNKNOWN INDICATION
     Dosage: 25 GAUGE NEEDLE WITH 1 CC
     Route: 065

REACTIONS (4)
  - Eating disorder [Unknown]
  - Psychotic disorder [Unknown]
  - Weight decreased [Unknown]
  - Intentional product use issue [Unknown]

NARRATIVE: CASE EVENT DATE: 20210513
